FAERS Safety Report 8438008 (Version 3)
Quarter: 2013Q3

REPORT INFORMATION
  Report Type: Spontaneous
  Country: US (occurrence: US)
  Receive Date: 20120302
  Receipt Date: 20130928
  Transmission Date: 20140515
  Serious: Yes (Death)
  Sender: FDA-Public Use
  Company Number: US-ROCHE-1044931

PATIENT
  Sex: 0

DRUGS (2)
  1. RITUXIMAB [Suspect]
     Indication: NEOPLASM MALIGNANT
     Route: 065
  2. RITUXIMAB [Suspect]
     Indication: AUTOIMMUNE DISORDER

REACTIONS (1)
  - Progressive multifocal leukoencephalopathy [Fatal]
